FAERS Safety Report 6409619-X (Version None)
Quarter: 2009Q4

REPORT INFORMATION
  Report Type: 
  Country: None (occurrence: None)
  Receive Date: 20091022
  Receipt Date: 20091009
  Transmission Date: 20100525
  Serious: Yes (Life-Threatening, Other)
  Sender: FDA-Public Use
  Company Number: PL-PFIZER INC-2009268686

PATIENT
  Age: 40 Year

DRUGS (4)
  1. ZELDOX [Suspect]
     Indication: SCHIZOPHRENIA
     Dosage: 80 MG, 2X/DAY
     Route: 048
     Dates: start: 20080606
  2. TISERCIN [Concomitant]
     Dosage: 25 MG, 1X/DAY
     Route: 048
     Dates: start: 20090305
  3. RELANIUM [Concomitant]
     Dosage: 5 MG, 1 AS NEEDED
     Route: 048
     Dates: start: 20090305
  4. GLIBETIC [Concomitant]
     Dosage: UNK
     Route: 048

REACTIONS (4)
  - CARDIAC ARREST [None]
  - HYPOGLYCAEMIA [None]
  - LOSS OF CONSCIOUSNESS [None]
  - SINUS TACHYCARDIA [None]
